FAERS Safety Report 11455687 (Version 1)
Quarter: 2015Q3

REPORT INFORMATION
  Report Type: Spontaneous
  Country: US (occurrence: US)
  Receive Date: 20150903
  Receipt Date: 20150903
  Transmission Date: 20151125
  Serious: No
  Sender: FDA-Public Use
  Company Number: US-BEH-2015049161

PATIENT
  Age: 51 Year
  Sex: Female
  Weight: 90 kg

DRUGS (20)
  1. SODIUM CHLORIDE. [Concomitant]
     Active Substance: SODIUM CHLORIDE
  2. COMBIVENT [Concomitant]
     Active Substance: ALBUTEROL SULFATE\IPRATROPIUM BROMIDE
  3. ZOCOR [Concomitant]
     Active Substance: SIMVASTATIN
  4. ZITHROMAX [Concomitant]
     Active Substance: AZITHROMYCIN DIHYDRATE
  5. LEVOTHYROXINE. [Concomitant]
     Active Substance: LEVOTHYROXINE
  6. OXYGEN. [Concomitant]
     Active Substance: OXYGEN
  7. IBUPROFEN. [Concomitant]
     Active Substance: IBUPROFEN
  8. AMOXICILLIN. [Concomitant]
     Active Substance: AMOXICILLIN
  9. ADVAIR HFA [Concomitant]
     Active Substance: FLUTICASONE PROPIONATE\SALMETEROL XINAFOATE
  10. EPIPEN [Concomitant]
     Active Substance: EPINEPHRINE
  11. COREG [Concomitant]
     Active Substance: CARVEDILOL
  12. LASIX [Concomitant]
     Active Substance: FUROSEMIDE
  13. PRILOSEC [Concomitant]
     Active Substance: OMEPRAZOLE MAGNESIUM
  14. CYTOMEL [Concomitant]
     Active Substance: LIOTHYRONINE SODIUM
  15. ZEMAIRA [Suspect]
     Active Substance: .ALPHA.1-PROTEINASE INHIBITOR HUMAN
     Indication: ALPHA-1 ANTI-TRYPSIN DEFICIENCY
     Route: 042
  16. LISINOPRIL. [Concomitant]
     Active Substance: LISINOPRIL
  17. LORAZEPAM. [Concomitant]
     Active Substance: LORAZEPAM
  18. DIPHENHYDRAMINE. [Concomitant]
     Active Substance: DIPHENHYDRAMINE
  19. NORCO [Concomitant]
     Active Substance: ACETAMINOPHEN\HYDROCODONE BITARTRATE
     Dosage: 10MG-325MG
  20. ATROVENT HFA [Concomitant]
     Active Substance: IPRATROPIUM BROMIDE

REACTIONS (2)
  - Tremor [Unknown]
  - Dyskinesia [Unknown]

NARRATIVE: CASE EVENT DATE: 20150217
